FAERS Safety Report 9051399 (Version 1)
Quarter: 2013Q1

REPORT INFORMATION
  Report Type: Spontaneous
  Country: None (occurrence: US)
  Receive Date: 20130206
  Receipt Date: 20130206
  Transmission Date: 20140127
  Serious: No
  Sender: FDA-Public Use
  Company Number: US-ALLERGAN-1204526US

PATIENT
  Age: 67 Year
  Sex: Female

DRUGS (6)
  1. RESTASIS? [Suspect]
     Indication: DRY EYE
     Dosage: 2 GTT, BID
     Route: 047
     Dates: start: 201203
  2. RESTASIS? [Suspect]
     Dosage: 2 GTT, BID
     Route: 047
  3. HCTZ [Concomitant]
     Indication: HYPERTENSION
  4. CARVEDILOL [Concomitant]
     Indication: HYPERTENSION
     Dosage: 6 MG, BID
     Route: 048
  5. METFORMIN [Concomitant]
     Indication: BLOOD GLUCOSE INCREASED
  6. SYNTHROID [Concomitant]
     Indication: HYPOTHYROIDISM

REACTIONS (7)
  - Asthenopia [Recovered/Resolved]
  - Swelling face [Recovered/Resolved]
  - Visual impairment [Recovered/Resolved]
  - Instillation site pain [Recovered/Resolved]
  - Eye irritation [Recovered/Resolved]
  - Foreign body sensation in eyes [Recovered/Resolved]
  - Vision blurred [Recovered/Resolved]
